FAERS Safety Report 4424005-X (Version None)
Quarter: 2004Q3

REPORT INFORMATION
  Report Type: 
  Country: None (occurrence: None)
  Receive Date: 20040806
  Receipt Date: 20040715
  Transmission Date: 20050211
  Serious: Yes (Death)
  Sender: FDA-Public Use
  Company Number: AU_040707911

PATIENT
  Age: 78 Year
  Sex: Female

DRUGS (1)
  1. ZYPREXA [Suspect]
     Dosage: 5 MG DAY
     Dates: start: 20030411

REACTIONS (1)
  - HAEMORRHAGIC STROKE [None]
